FAERS Safety Report 21044782 (Version 1)
Quarter: 2022Q3

REPORT INFORMATION
  Report Type: Spontaneous
  Country: US (occurrence: US)
  Receive Date: 20220705
  Receipt Date: 20220705
  Transmission Date: 20221027
  Serious: Yes (Other)
  Sender: FDA-Public Use
  Company Number: US-SA-SAC20220630001154

PATIENT
  Age: 62 Year
  Sex: Female

DRUGS (1)
  1. ZANTAC [Suspect]
     Active Substance: RANITIDINE HYDROCHLORIDE
     Dosage: UNK, QW
     Dates: start: 200001, end: 201901

REACTIONS (3)
  - Hepatic cancer [Unknown]
  - Lung neoplasm malignant [Unknown]
  - Throat cancer [Unknown]

NARRATIVE: CASE EVENT DATE: 20200101
